FAERS Safety Report 5197214-2 (Version None)
Quarter: 2006Q4

REPORT INFORMATION
  Report Type: 
  Country: None (occurrence: None)
  Receive Date: 20061227
  Receipt Date: 20061215
  Transmission Date: 20070319
  Serious: Yes (Other)
  Sender: FDA-Public Use
  Company Number: 2006154076

PATIENT
  Age: 59 Year
  Sex: Female

DRUGS (1)
  1. LYRICA [Suspect]
     Indication: NEURALGIA
     Dosage: 25 MG, ORAL
     Route: 048
     Dates: start: 20060701, end: 20060701

REACTIONS (4)
  - NIGHTMARE [None]
  - SENSATION OF HEAVINESS [None]
  - SOMNOLENCE [None]
  - VISUAL DISTURBANCE [None]
